FAERS Safety Report 21176932 (Version 1)
Quarter: 2022Q3

REPORT INFORMATION
  Report Type: Spontaneous
  Country: US (occurrence: None)
  Receive Date: 20220804
  Receipt Date: 20220804
  Transmission Date: 20221027
  Serious: No
  Sender: FDA-Public Use
  Company Number: None

PATIENT
  Age: 30 Year
  Sex: Male
  Weight: 70.65 kg

DRUGS (4)
  1. DEXTROAMPHET SACCHARAT, AMPHET ASPARTATE, DEXTROAMPHET SULFATE AND AMP [Suspect]
     Active Substance: AMPHETAMINE ASPARTATE\AMPHETAMINE SULFATE\DEXTROAMPHETAMINE SACCHARATE\DEXTROAMPHETAMINE SULFATE
     Indication: Attention deficit hyperactivity disorder
     Dosage: OTHER QUANTITY : 1 TABLET(S);?FREQUENCY : TWICE A DAY;?
     Route: 048
     Dates: start: 20220804, end: 20220804
  2. ADDERALL [Concomitant]
  3. MELATONIN [Concomitant]
     Active Substance: MELATONIN
  4. MAGNESIUM GLYCINATE [Concomitant]
     Active Substance: MAGNESIUM GLYCINATE

REACTIONS (6)
  - Fatigue [None]
  - Lethargy [None]
  - Feeling abnormal [None]
  - Product substitution issue [None]
  - Condition aggravated [None]
  - Drug ineffective [None]

NARRATIVE: CASE EVENT DATE: 20220804
